FAERS Safety Report 9782010 (Version 2)
Quarter: 2013Q4

REPORT INFORMATION
  Report Type: Spontaneous
  Country: US (occurrence: US)
  Receive Date: 20131225
  Receipt Date: 20131225
  Transmission Date: 20140711
  Serious: Yes (Disabling)
  Sender: FDA-Public Use
  Company Number: US-GE HEALTHCARE MEDICAL DIAGNOSTICS-OSCN-PR-0805S-0287

PATIENT
  Age: 46 Year
  Sex: Female
  Weight: 52 kg

DRUGS (27)
  1. OMNISCAN [Suspect]
     Indication: PRODUCT USED FOR UNKNOWN INDICATION
  2. MAGNEVIST [Suspect]
     Indication: PRODUCT USED FOR UNKNOWN INDICATION
     Dates: start: 20040405, end: 20040405
  3. MAGNEVIST [Suspect]
     Indication: HYPOTHALAMO-PITUITARY DISORDER
     Dates: start: 20040726, end: 20040726
  4. MAGNEVIST [Suspect]
     Indication: VENOUS OCCLUSION
     Dates: start: 20041220, end: 20041220
  5. MULTIHANCE [Suspect]
     Indication: INFECTION
     Dates: start: 20060202, end: 20060202
  6. MULTIHANCE [Suspect]
     Indication: RENAL FAILURE CHRONIC
  7. OPTIMARK [Suspect]
     Indication: PRODUCT USED FOR UNKNOWN INDICATION
  8. PROHANCE [Suspect]
     Indication: PRODUCT USED FOR UNKNOWN INDICATION
     Dates: start: 20060720, end: 20060720
  9. PROHANCE [Suspect]
     Dates: start: 20070925, end: 20070925
  10. COUMADIN [Concomitant]
  11. EPOGEN [Concomitant]
  12. HEPARIN [Concomitant]
  13. PLAQUENIL [Concomitant]
  14. NEPHROCAPS [Concomitant]
  15. NEURONTIN [Concomitant]
  16. PHOSLO [Concomitant]
  17. PREDNISONE [Concomitant]
  18. SOLUCORTEF [Concomitant]
  19. RENAGEL [Concomitant]
  20. GENTAMYCIN [Concomitant]
  21. LEVOCARNITINE [Concomitant]
  22. VENOFER [Concomitant]
  23. ARANESP [Concomitant]
  24. RENAPHRO [Concomitant]
  25. PROAMATINE [Concomitant]
  26. CARDIZEM CD [Concomitant]
  27. LOPRESSOR [Concomitant]

REACTIONS (1)
  - Nephrogenic systemic fibrosis [Not Recovered/Not Resolved]
